FAERS Safety Report 4461741-3 (Version None)
Quarter: 2004Q3

REPORT INFORMATION
  Report Type: 
  Country: None (occurrence: None)
  Receive Date: 20040924
  Receipt Date: 20040915
  Transmission Date: 20050211
  Serious: Yes (Other)
  Sender: FDA-Public Use
  Company Number: 207658

PATIENT
  Age: 57 Year
  Sex: Male

DRUGS (7)
  1. RITUXIMAB (RITUXIMAB) CONC FOR SOLUTION FOR INFUSION [Suspect]
     Indication: CHRONIC LYMPHOCYTIC LEUKAEMIA
     Dosage: 500 MG, INTRAVENOUS
     Route: 042
     Dates: start: 20040224
  2. FLUDARABINE (FLUDARABINE  PHOSPHATE) [Suspect]
     Indication: CHRONIC LYMPHOCYTIC LEUKAEMIA
     Dosage: 25 MG/M2, INTRAVENOUS
     Route: 042
     Dates: start: 20040224
  3. CYCLOPHOSPHAMIDE [Suspect]
     Indication: CHRONIC LYMPHOCYTIC LEUKAEMIA
     Dosage: 250MG/M2, INTRAVENOUS
     Route: 042
     Dates: start: 20040224
  4. FOLIC ACID [Concomitant]
  5. BACTRIM [Concomitant]
  6. VALACYCLOVIR HCL [Concomitant]
  7. AUGMENTIN (AMOXICILLIN, CLAVULANATE POTASSIUM) [Concomitant]

REACTIONS (3)
  - LARYNGITIS [None]
  - NEUTROPENIA [None]
  - WHITE BLOOD CELL COUNT DECREASED [None]
